FAERS Safety Report 14714734 (Version 1)
Quarter: 2018Q1

REPORT INFORMATION
  Report Type: Spontaneous
  Country: US (occurrence: US)
  Receive Date: 20180330
  Receipt Date: 20180330
  Transmission Date: 20180509
  Serious: No
  Sender: FDA-Public Use
  Company Number: None

PATIENT
  Age: 52 Year
  Sex: Female

DRUGS (1)
  1. TALTZ [Suspect]
     Active Substance: IXEKIZUMAB
     Indication: MYOCARDITIS
     Dosage: 80 MG EVERY 28 DAYS SQ
     Route: 058
     Dates: start: 20171218, end: 20180316

REACTIONS (1)
  - Malaise [None]

NARRATIVE: CASE EVENT DATE: 20180316
